FAERS Safety Report 19710225 (Version 3)
Quarter: 2021Q4

REPORT INFORMATION
  Report Type: Spontaneous
  Country: US (occurrence: US)
  Receive Date: 20210817
  Receipt Date: 20211221
  Transmission Date: 20220303
  Serious: Yes (Hospitalization)
  Sender: FDA-Public Use
  Company Number: US-GW PHARMA-202108USGW03915

PATIENT

DRUGS (2)
  1. EPIDIOLEX [Suspect]
     Active Substance: CANNABIDIOL
     Indication: Epilepsy
     Dosage: 10.73 MG/KG/DAY, 220 MILLIGRAM, BID
     Route: 048
     Dates: start: 20201211
  2. EPIDIOLEX [Suspect]
     Active Substance: CANNABIDIOL
     Dosage: 400 MILLIGRAMS

REACTIONS (7)
  - Respiratory tract congestion [Unknown]
  - Gastrostomy [Unknown]
  - Gynaecomastia [Unknown]
  - Weight increased [Unknown]
  - Hospitalisation [Unknown]
  - Hospitalisation [Unknown]
  - Product use in unapproved indication [Unknown]

NARRATIVE: CASE EVENT DATE: 20210807
